FAERS Safety Report 12195216 (Version 1)
Quarter: 2016Q1

REPORT INFORMATION
  Report Type: Spontaneous
  Country: US (occurrence: US)
  Receive Date: 20160321
  Receipt Date: 20160321
  Transmission Date: 20160526
  Serious: No
  Sender: FDA-Public Use
  Company Number: US-TEVA-629509USA

PATIENT
  Sex: Male

DRUGS (1)
  1. NORTRIPTYLINE [Suspect]
     Active Substance: NORTRIPTYLINE
     Indication: DEPRESSION
     Route: 065

REACTIONS (6)
  - Sexual dysfunction [Unknown]
  - Balance disorder [Unknown]
  - Tremor [Unknown]
  - Gynaecomastia [Unknown]
  - Alcohol use [Unknown]
  - Libido decreased [Unknown]
